FAERS Safety Report 13176767 (Version 1)
Quarter: 2017Q1

REPORT INFORMATION
  Report Type: Spontaneous
  Country: US (occurrence: US)
  Receive Date: 20170201
  Receipt Date: 20170201
  Transmission Date: 20170428
  Serious: No
  Sender: FDA-Public Use
  Company Number: GXBR2016US000811

PATIENT
  Age: 73 Year
  Sex: Female
  Weight: 59.86 kg

DRUGS (1)
  1. CLOBETASOL PROPIONATE. [Suspect]
     Active Substance: CLOBETASOL PROPIONATE
     Indication: NEURODERMATITIS
     Dosage: 15 GTT, QHS
     Route: 061
     Dates: start: 20160224

REACTIONS (2)
  - Skin disorder [Not Recovered/Not Resolved]
  - Pruritus [Not Recovered/Not Resolved]

NARRATIVE: CASE EVENT DATE: 20160225
